FAERS Safety Report 8735049 (Version 2)
Quarter: 2012Q4

REPORT INFORMATION
  Report Type: 
  Country: US (occurrence: US)
  Receive Date: 20120821
  Receipt Date: 20120831
  Transmission Date: 20130627
  Serious: Yes (Other)
  Sender: FDA-Public Use
  Company Number: CHPA2012US018084

PATIENT
  Age: 80 Year
  Sex: Female

DRUGS (2)
  1. KERI SHEA BUTTER [Suspect]
     Indication: DRY SKIN
     Dosage: Unk, Daily
     Route: 061
     Dates: end: 201206
  2. CHEMOTHERAPEUTICS [Suspect]
     Indication: LUNG NEOPLASM MALIGNANT
     Dosage: Unk, once a week
     Route: 065

REACTIONS (2)
  - Lung neoplasm malignant [Recovered/Resolved]
  - Decreased appetite [Recovered/Resolved]
